FAERS Safety Report 23609886 (Version 2)
Quarter: 2024Q1

REPORT INFORMATION
  Report Type: Spontaneous
  Country: US (occurrence: US)
  Receive Date: 20240308
  Receipt Date: 20240319
  Transmission Date: 20240410
  Serious: Yes (Hospitalization, Other)
  Sender: FDA-Public Use
  Company Number: US-MLMSERVICE-20240223-4844672-1

PATIENT
  Age: 66 Year
  Sex: Male

DRUGS (1)
  1. ASPIRIN [Suspect]
     Active Substance: ASPIRIN
     Indication: Antiplatelet therapy

REACTIONS (6)
  - Large intestinal haemorrhage [Unknown]
  - Subarachnoid haemorrhage [None]
  - Intraventricular haemorrhage [None]
  - Subdural haematoma [None]
  - Extradural haematoma [None]
  - Labelled drug-drug interaction issue [None]
